FAERS Safety Report 11790646 (Version 1)
Quarter: 2015Q4

REPORT INFORMATION
  Report Type: Spontaneous
  Country: JP (occurrence: JP)
  Receive Date: 20151201
  Receipt Date: 20151201
  Transmission Date: 20160305
  Serious: Yes (Hospitalization)
  Sender: FDA-Public Use
  Company Number: JP-TEVA-2015-JP-002252J

PATIENT
  Age: 83 Year
  Sex: Male

DRUGS (6)
  1. FUROSEMIDE TABLET 20MG ^TEVA^ [Suspect]
     Active Substance: FUROSEMIDE
     Indication: PRODUCT USED FOR UNKNOWN INDICATION
     Dosage: 40 MILLIGRAM DAILY;
     Route: 048
  2. BIO-THREE [Concomitant]
     Active Substance: HERBALS
     Route: 048
  3. TAKEPRON [Concomitant]
     Active Substance: LANSOPRAZOLE
     Dosage: 30 MILLIGRAM DAILY;
     Route: 048
  4. TS-1 [Concomitant]
     Active Substance: GIMERACIL\OTERACIL\TEGAFUR
     Dosage: 80 MILLIGRAM DAILY;
     Route: 048
  5. MAGMITT [Concomitant]
     Active Substance: MAGNESIUM OXIDE
     Route: 048
  6. HOCHUEKKITO [Concomitant]
     Active Substance: HERBALS
     Dosage: 7.5 GRAM DAILY;
     Route: 048

REACTIONS (2)
  - Muscle contracture [Unknown]
  - Muscular weakness [Unknown]

NARRATIVE: CASE EVENT DATE: 20151026
